FAERS Safety Report 24168771 (Version 3)
Quarter: 2025Q3

REPORT INFORMATION
  Report Type: Report from Study
  Country: JP (occurrence: JP)
  Receive Date: 20240802
  Receipt Date: 20250810
  Transmission Date: 20251020
  Serious: Yes (Hospitalization, Other)
  Sender: ALEXION PHARMACEUTICALS
  Company Number: 2024A159294

PATIENT
  Age: 36 Year
  Sex: Female
  Weight: 76 kg

DRUGS (16)
  1. TEZEPELUMAB [Suspect]
     Active Substance: TEZEPELUMAB
     Indication: Asthma
  2. TRELEGY ELLIPTA [Concomitant]
     Active Substance: FLUTICASONE FUROATE\UMECLIDINIUM BROMIDE\VILANTEROL TRIFENATATE
     Indication: Asthma
     Dosage: NUMBER OF SEPARATE DOSAGES UNKNOWN
  3. PREDNISOLONE [Concomitant]
     Active Substance: PREDNISOLONE
     Indication: Asthma
     Dosage: NUMBER OF SEPARATE DOSAGES UNKNOWN
     Dates: start: 20230619, end: 20230703
  4. MONTELUKAST SODIUM [Concomitant]
     Active Substance: MONTELUKAST SODIUM
     Indication: Asthma
     Dosage: NUMBER OF SEPARATE DOSAGES UNKNOWN
  5. THEOPHYLLINE [Concomitant]
     Active Substance: THEOPHYLLINE
     Indication: Asthma
     Dosage: NUMBER OF SEPARATE DOSAGES UNKNOWN
     Dates: start: 20231207
  6. ALESION [Concomitant]
     Active Substance: EPINASTINE HYDROCHLORIDE
     Indication: Dermatitis allergic
     Dosage: NUMBER OF SEPARATE DOSAGES UNKNOWN
  7. DEPAKENE [Concomitant]
     Active Substance: VALPROIC ACID
     Indication: Social anxiety disorder
     Dosage: NUMBER OF SEPARATE DOSAGES UNKNOWN
  8. SERTRALINE HYDROCHLORIDE [Concomitant]
     Active Substance: SERTRALINE HYDROCHLORIDE
     Indication: Social anxiety disorder
     Dosage: NUMBER OF SEPARATE DOSAGES UNKNOWN
  9. ZYPREXA [Concomitant]
     Active Substance: OLANZAPINE
     Indication: Social anxiety disorder
     Dosage: NUMBER OF SEPARATE DOSAGES UNKNOWN
  10. OLANZAPINE [Concomitant]
     Active Substance: OLANZAPINE
     Indication: Social anxiety disorder
     Dosage: NUMBER OF SEPARATE DOSAGES UNKNOWN
  11. LUNESTA [Concomitant]
     Active Substance: ESZOPICLONE
     Indication: Social anxiety disorder
     Dosage: NUMBER OF SEPARATE DOSAGES UNKNOWN
  12. RIVOTRIL [Concomitant]
     Active Substance: CLONAZEPAM
     Indication: Social anxiety disorder
     Dosage: NUMBER OF SEPARATE DOSAGES UNKNOWN
  13. DAYVIGO [Concomitant]
     Active Substance: LEMBOREXANT
     Indication: Social anxiety disorder
     Dosage: NUMBER OF SEPARATE DOSAGES UNKNOWN
  14. CYMBALTA [Concomitant]
     Active Substance: DULOXETINE HYDROCHLORIDE
     Indication: Social anxiety disorder
     Dosage: NUMBER OF SEPARATE DOSAGES UNKNOWN
  15. ABILIFY [Concomitant]
     Active Substance: ARIPIPRAZOLE
     Indication: Social anxiety disorder
     Dosage: NUMBER OF SEPARATE DOSAGES UNKNOWN
  16. MAGNESIUM OXIDE [Concomitant]
     Active Substance: MAGNESIUM OXIDE
     Indication: Social anxiety disorder

REACTIONS (2)
  - Erysipelas [Recovered/Resolved]
  - Asthma [Recovered/Resolved]

NARRATIVE: CASE EVENT DATE: 20240308
